FAERS Safety Report 8905425 (Version 4)
Quarter: 2014Q3

REPORT INFORMATION
  Report Type: Spontaneous
  Country: US (occurrence: US)
  Receive Date: 20121113
  Receipt Date: 20140827
  Transmission Date: 20150326
  Serious: Yes (Hospitalization)
  Sender: FDA-Public Use
  Company Number: US-009507513-1211USA003840

PATIENT
  Sex: Male
  Weight: 87.53 kg

DRUGS (8)
  1. FINASTERIDE. [Suspect]
     Active Substance: FINASTERIDE
     Dosage: 5 MG, QD
     Route: 048
     Dates: start: 20060725, end: 20111014
  2. FINASTERIDE. [Suspect]
     Active Substance: FINASTERIDE
     Indication: ANDROGENETIC ALOPECIA
     Dosage: 5 MG, UNK
     Route: 048
     Dates: start: 20060725
  3. FINASTERIDE. [Suspect]
     Active Substance: FINASTERIDE
     Dosage: 2.5 UNK, UNK
     Route: 048
  4. LUNESTA [Concomitant]
     Active Substance: ESZOPICLONE
     Indication: INSOMNIA
     Dosage: 3 MG, QPM
     Route: 048
  5. AMBIEN [Concomitant]
     Active Substance: ZOLPIDEM TARTRATE
     Indication: INSOMNIA
     Dosage: 12.5 MG, QPM
     Route: 048
  6. PROSCAR [Suspect]
     Active Substance: FINASTERIDE
     Indication: ANDROGENETIC ALOPECIA
     Dosage: 5 MG, QD
     Route: 048
     Dates: start: 20040506, end: 20120417
  7. PROPECIA [Suspect]
     Active Substance: FINASTERIDE
     Indication: ANDROGENETIC ALOPECIA
     Dosage: 1 MG, QD
     Route: 048
     Dates: start: 19981022, end: 20040205
  8. RESTORIL (TEMAZEPAM) [Concomitant]
     Indication: INSOMNIA
     Dosage: UNK
     Dates: start: 19981022

REACTIONS (23)
  - Hypertension [Unknown]
  - Rotator cuff syndrome [Unknown]
  - Anxiety [Unknown]
  - Hypogonadism male [Unknown]
  - Parotidectomy [Recovering/Resolving]
  - Tinnitus [Unknown]
  - Blood testosterone decreased [Unknown]
  - Gastrooesophageal reflux disease [Unknown]
  - Libido decreased [Unknown]
  - Pleomorphic adenoma [Recovering/Resolving]
  - Sperm concentration decreased [Unknown]
  - Sexual dysfunction [Not Recovered/Not Resolved]
  - Erectile dysfunction [Unknown]
  - Headache [Unknown]
  - Sleep disorder [Unknown]
  - Drug administration error [Unknown]
  - Hypercholesterolaemia [Unknown]
  - Scar [Unknown]
  - Weight decreased [Unknown]
  - Drug administration error [Unknown]
  - Cognitive disorder [Not Recovered/Not Resolved]
  - Musculoskeletal stiffness [Unknown]
  - Stress [Unknown]

NARRATIVE: CASE EVENT DATE: 1999
